FAERS Safety Report 15184117 (Version 2)
Quarter: 2018Q4

REPORT INFORMATION
  Report Type: Report from Study
  Country: US (occurrence: US)
  Receive Date: 20180723
  Receipt Date: 20181228
  Transmission Date: 20190204
  Serious: No
  Sender: FDA-Public Use
  Company Number: US-SA-2017SA220040

PATIENT
  Age: 60 Year
  Sex: Female
  Weight: 88.45 kg

DRUGS (2)
  1. TERIFLUNOMIDE. [Suspect]
     Active Substance: TERIFLUNOMIDE
     Indication: MULTIPLE SCLEROSIS
     Dosage: 14 MG, QD
     Route: 048
     Dates: start: 20171201
  2. TERIFLUNOMIDE. [Suspect]
     Active Substance: TERIFLUNOMIDE
     Dosage: 14 MG, QOD
     Route: 048
     Dates: start: 2017

REACTIONS (16)
  - Product use issue [Unknown]
  - Hypoaesthesia [Not Recovered/Not Resolved]
  - Erythema [Not Recovered/Not Resolved]
  - Nasopharyngitis [Not Recovered/Not Resolved]
  - Product dose omission [Unknown]
  - Abdominal pain upper [Unknown]
  - Diarrhoea [Unknown]
  - Visual impairment [Not Recovered/Not Resolved]
  - Loss of personal independence in daily activities [Unknown]
  - Flatulence [Unknown]
  - Headache [Unknown]
  - Paraesthesia [Unknown]
  - Neuralgia [Not Recovered/Not Resolved]
  - Rash pruritic [Not Recovered/Not Resolved]
  - Insomnia [Unknown]
  - Memory impairment [Not Recovered/Not Resolved]
